FAERS Safety Report 5384877-1 (Version None)
Quarter: 2007Q3

REPORT INFORMATION
  Report Type: 
  Country: None (occurrence: None)
  Receive Date: 20070709
  Receipt Date: 20070626
  Transmission Date: 20080115
  Serious: Yes (Other)
  Sender: FDA-Public Use
  Company Number: 2007SP008114

PATIENT
  Age: 32 Year
  Sex: Female
  Weight: 90.7194 kg

DRUGS (4)
  1. CLARITIN-D 24 HOUR [Suspect]
     Indication: HYPERSENSITIVITY
     Dosage: ONCE; PO
     Route: 048
     Dates: start: 20070407, end: 20070407
  2. CLARITIN-D 24 HOUR [Suspect]
     Indication: LACRIMATION INCREASED
     Dosage: ONCE; PO
     Route: 048
     Dates: start: 20070407, end: 20070407
  3. CLARITIN-D 24 HOUR [Suspect]
     Indication: NASAL CONGESTION
     Dosage: ONCE; PO
     Route: 048
     Dates: start: 20070407, end: 20070407
  4. ADVIL LIQUI-GELS [Concomitant]

REACTIONS (2)
  - ASTHMA [None]
  - PHARMACEUTICAL PRODUCT COMPLAINT [None]
